FAERS Safety Report 8827708 (Version 1)
Quarter: 2012Q4

REPORT INFORMATION
  Report Type: 
  Country: US (occurrence: US)
  Receive Date: 20121008
  Receipt Date: 20121008
  Transmission Date: 20130627
  Serious: No
  Sender: FDA-Public Use
  Company Number: US-PFIZER INC-2012244135

PATIENT
  Age: 78 Year
  Sex: Female
  Weight: 72.56 kg

DRUGS (13)
  1. REVATIO [Suspect]
     Indication: CARDIAC DISORDER
     Dosage: 20 mg, 3x/day
     Dates: start: 2012
  2. REVATIO [Suspect]
     Indication: LUNG DISORDER
  3. ALENDRONATE SODIUM [Concomitant]
     Indication: BONE DENSITY ABNORMAL
     Dosage: 70 mg, weekly
     Dates: end: 201209
  4. ALPRAZOLAM [Concomitant]
     Indication: NERVOUSNESS
     Dosage: 0.25 mg, as needed
  5. ALPRAZOLAM [Concomitant]
     Indication: FEELING JITTERY
  6. AMLODIPINE [Concomitant]
     Dosage: 10 mg, daily
  7. CALCIUM [Concomitant]
     Indication: BONE DISORDER
     Dosage: 600 mg, 2x/day
  8. CARVEDILOL [Concomitant]
     Indication: CARDIAC DISORDER
     Dosage: 25 mg, 2x/day
  9. FERROUS SULPHATE [Concomitant]
     Indication: MINERAL SUPPLEMENTATION
     Dosage: 60 mg, daily
  10. FLUTICASONE PROPIONATE [Concomitant]
     Dosage: UNK, daily
  11. FUROSEMIDE [Concomitant]
     Indication: DIURETIC THERAPY
     Dosage: 40 mg, daily
  12. LEVOTHYROXINE [Concomitant]
     Dosage: 100 ug, daily
  13. WARFARIN [Concomitant]
     Indication: BLOOD DISORDER
     Dosage: UNK, as needed

REACTIONS (6)
  - Chest pain [Recovering/Resolving]
  - Dyspepsia [Recovering/Resolving]
  - Back pain [Recovering/Resolving]
  - Burning sensation [Recovering/Resolving]
  - Dyspepsia [Recovering/Resolving]
  - Pain [Recovering/Resolving]
